FAERS Safety Report 23454272 (Version 2)
Quarter: 2024Q2

REPORT INFORMATION
  Report Type: Spontaneous
  Country: TR (occurrence: TR)
  Receive Date: 20240130
  Receipt Date: 20240404
  Transmission Date: 20240716
  Serious: Yes (Hospitalization)
  Sender: FDA-Public Use
  Company Number: TR-NOVOPROD-1166809

PATIENT
  Age: 58 Year
  Sex: Male

DRUGS (1)
  1. INSULIN ASPART\INSULIN DEGLUDEC [Suspect]
     Active Substance: INSULIN ASPART\INSULIN DEGLUDEC
     Indication: Product used for unknown indication
     Dosage: 26 IU, QD ((14 IU IN THE MORNING, 12 IU AT NIGHT))
     Dates: end: 20240119

REACTIONS (1)
  - Acute febrile neutrophilic dermatosis [Unknown]
